FAERS Safety Report 4865435-1 (Version None)
Quarter: 2005Q4

REPORT INFORMATION
  Report Type: 
  Country: None (occurrence: None)
  Receive Date: 20051219
  Receipt Date: 20051201
  Transmission Date: 20060501
  Serious: Yes (Other)
  Sender: FDA-Public Use
  Company Number: ACO_0198_2005

PATIENT
  Age: 50 Year
  Sex: Male

DRUGS (5)
  1. ZANAFLEX [Suspect]
     Dosage: 4 MG TID PO
     Route: 048
  2. CITALOPRAM HYDROBROMIDE [Concomitant]
  3. TOPAMAX [Concomitant]
  4. MARIJUANA [Concomitant]
  5. DIPHENHYDRAMINE HCL [Concomitant]

REACTIONS (5)
  - AGGRESSION [None]
  - DRUG WITHDRAWAL SYNDROME [None]
  - PERSONALITY CHANGE [None]
  - PSYCHOTIC DISORDER [None]
  - SPEECH DISORDER [None]
